FAERS Safety Report 12523059 (Version 4)
Quarter: 2018Q3

REPORT INFORMATION
  Report Type: Spontaneous
  Country: FR (occurrence: FR)
  Receive Date: 20160701
  Receipt Date: 20180910
  Transmission Date: 20181010
  Serious: Yes (Other)
  Sender: FDA-Public Use
  Company Number: PHHY2016FR090360

PATIENT
  Age: 62 Year
  Sex: Male
  Weight: 102 kg

DRUGS (4)
  1. ADVAGRAF [Concomitant]
     Active Substance: TACROLIMUS
     Indication: LIVER TRANSPLANT
     Dosage: 5 MG, QD
     Route: 065
     Dates: start: 2014
  2. CERTICAN [Suspect]
     Active Substance: EVEROLIMUS
     Dosage: 0.75 MG, BID
     Route: 065
     Dates: start: 20160614, end: 20160705
  3. CERTICAN [Suspect]
     Active Substance: EVEROLIMUS
     Indication: PRODUCT USED FOR UNKNOWN INDICATION
     Dosage: 4 DF, BID (0.75MG)
     Route: 048
     Dates: start: 201511, end: 20160609
  4. CERTICAN [Suspect]
     Active Substance: EVEROLIMUS
     Dosage: 2 DF, BID (0.5MG)
     Route: 048
     Dates: start: 20160609

REACTIONS (1)
  - Haemolysis [Recovered/Resolved]

NARRATIVE: CASE EVENT DATE: 201604
